FAERS Safety Report 25954436 (Version 1)
Quarter: 2025Q4

REPORT INFORMATION
  Report Type: Spontaneous
  Country: CA (occurrence: CA)
  Receive Date: 20251023
  Receipt Date: 20251023
  Transmission Date: 20260117
  Serious: Yes (Death, Life-Threatening, Hospitalization, Disabling, Other)
  Sender: Haleon PLC
  Company Number: CA-002147023-NVSC2024CA136506

PATIENT
  Age: 44 Year
  Sex: Female
  Weight: 97 kg

DRUGS (164)
  1. DICLOFENAC [Suspect]
     Active Substance: DICLOFENAC
     Indication: Product used for unknown indication
  2. DICLOFENAC [Suspect]
     Active Substance: DICLOFENAC
  3. PANADOL [Suspect]
     Active Substance: ACETAMINOPHEN
     Indication: Product used for unknown indication
  4. ACTIFED (PSEUDOEPHEDRINE HYDROCHLORIDE\TRIPROLIDINE HYDROCHLORIDE) [Suspect]
     Active Substance: PSEUDOEPHEDRINE HYDROCHLORIDE\TRIPROLIDINE HYDROCHLORIDE
     Indication: Product used for unknown indication
  5. ACETAMINOPHEN\CODEINE PHOSPHATE [Suspect]
     Active Substance: ACETAMINOPHEN\CODEINE PHOSPHATE
     Indication: Product used for unknown indication
  6. ASCORBIC ACID [Suspect]
     Active Substance: ASCORBIC ACID
     Indication: Product used for unknown indication
  7. ASCORBIC ACID [Suspect]
     Active Substance: ASCORBIC ACID
  8. DICLOFENAC POTASSIUM [Suspect]
     Active Substance: DICLOFENAC POTASSIUM
     Indication: Product used for unknown indication
  9. DICLOFENAC POTASSIUM [Suspect]
     Active Substance: DICLOFENAC POTASSIUM
  10. DICLOFENAC POTASSIUM [Suspect]
     Active Substance: DICLOFENAC POTASSIUM
     Route: 048
  11. DICLOFENAC POTASSIUM [Suspect]
     Active Substance: DICLOFENAC POTASSIUM
     Route: 048
  12. DICLOFENAC POTASSIUM [Suspect]
     Active Substance: DICLOFENAC POTASSIUM
     Route: 050
  13. DICLOFENAC POTASSIUM [Suspect]
     Active Substance: DICLOFENAC POTASSIUM
  14. DICLOFENAC POTASSIUM [Suspect]
     Active Substance: DICLOFENAC POTASSIUM
  15. DICLOFENAC POTASSIUM [Suspect]
     Active Substance: DICLOFENAC POTASSIUM
     Route: 058
  16. DICLOFENAC POTASSIUM [Suspect]
     Active Substance: DICLOFENAC POTASSIUM
     Route: 058
  17. DICLOFENAC POTASSIUM [Suspect]
     Active Substance: DICLOFENAC POTASSIUM
  18. PANTOPRAZOLE SODIUM [Suspect]
     Active Substance: PANTOPRAZOLE SODIUM
     Indication: Product used for unknown indication
  19. DICLOFENAC DIETHYLAMINE [Suspect]
     Active Substance: DICLOFENAC DIETHYLAMINE
     Indication: Product used for unknown indication
  20. COSENTYX [Suspect]
     Active Substance: SECUKINUMAB
     Indication: Product used for unknown indication
     Route: 005
  21. COSENTYX [Suspect]
     Active Substance: SECUKINUMAB
  22. DICLOFENAC SODIUM [Suspect]
     Active Substance: DICLOFENAC SODIUM
     Indication: Rheumatoid arthritis
     Route: 058
  23. DICLOFENAC SODIUM [Suspect]
     Active Substance: DICLOFENAC SODIUM
  24. DICLOFENAC SODIUM [Suspect]
     Active Substance: DICLOFENAC SODIUM
  25. DICLOFENAC SODIUM [Suspect]
     Active Substance: DICLOFENAC SODIUM
     Route: 048
  26. DICLOFENAC SODIUM [Suspect]
     Active Substance: DICLOFENAC SODIUM
     Route: 058
  27. DICLOFENAC SODIUM [Suspect]
     Active Substance: DICLOFENAC SODIUM
  28. DICLOFENAC SODIUM [Suspect]
     Active Substance: DICLOFENAC SODIUM
  29. DICLOFENAC SODIUM [Suspect]
     Active Substance: DICLOFENAC SODIUM
  30. DICLOFENAC SODIUM [Suspect]
     Active Substance: DICLOFENAC SODIUM
  31. DICLOFENAC SODIUM [Suspect]
     Active Substance: DICLOFENAC SODIUM
  32. DICLOFENAC SODIUM [Suspect]
     Active Substance: DICLOFENAC SODIUM
  33. DICLOFENAC SODIUM [Suspect]
     Active Substance: DICLOFENAC SODIUM
  34. DICLOFENAC SODIUM [Suspect]
     Active Substance: DICLOFENAC SODIUM
  35. DICLOFENAC SODIUM [Suspect]
     Active Substance: DICLOFENAC SODIUM
  36. DICLOFENAC SODIUM [Suspect]
     Active Substance: DICLOFENAC SODIUM
  37. TRIAMCINOLONE ACETONIDE [Suspect]
     Active Substance: TRIAMCINOLONE ACETONIDE
     Indication: Rheumatoid arthritis
     Dosage: INTRA-ARTICULAR
  38. SULFASALAZINE [Suspect]
     Active Substance: SULFASALAZINE
     Indication: Rheumatoid arthritis
  39. SULFASALAZINE [Suspect]
     Active Substance: SULFASALAZINE
  40. SULFASALAZINE [Suspect]
     Active Substance: SULFASALAZINE
     Route: 048
  41. SULFASALAZINE [Suspect]
     Active Substance: SULFASALAZINE
     Route: 048
  42. SULFASALAZINE [Suspect]
     Active Substance: SULFASALAZINE
     Route: 058
  43. SULFASALAZINE [Suspect]
     Active Substance: SULFASALAZINE
     Route: 048
  44. SULFASALAZINE [Suspect]
     Active Substance: SULFASALAZINE
     Route: 058
  45. SULFASALAZINE [Suspect]
     Active Substance: SULFASALAZINE
     Route: 048
  46. SULFASALAZINE [Suspect]
     Active Substance: SULFASALAZINE
     Route: 058
  47. SULFASALAZINE [Suspect]
     Active Substance: SULFASALAZINE
  48. SULFASALAZINE [Suspect]
     Active Substance: SULFASALAZINE
  49. SULFASALAZINE [Suspect]
     Active Substance: SULFASALAZINE
  50. SULFASALAZINE [Suspect]
     Active Substance: SULFASALAZINE
     Route: 048
  51. SULFASALAZINE [Suspect]
     Active Substance: SULFASALAZINE
  52. SULFASALAZINE [Suspect]
     Active Substance: SULFASALAZINE
     Route: 048
  53. SULFASALAZINE [Suspect]
     Active Substance: SULFASALAZINE
     Route: 048
  54. SULFASALAZINE [Suspect]
     Active Substance: SULFASALAZINE
     Route: 048
  55. SULFASALAZINE [Suspect]
     Active Substance: SULFASALAZINE
     Route: 048
  56. SULFASALAZINE [Suspect]
     Active Substance: SULFASALAZINE
     Route: 048
  57. SULFASALAZINE [Suspect]
     Active Substance: SULFASALAZINE
     Route: 048
  58. SULFASALAZINE [Suspect]
     Active Substance: SULFASALAZINE
     Route: 048
  59. SULFASALAZINE [Suspect]
     Active Substance: SULFASALAZINE
     Route: 048
  60. SULFASALAZINE [Suspect]
     Active Substance: SULFASALAZINE
  61. SULFASALAZINE [Suspect]
     Active Substance: SULFASALAZINE
     Route: 048
  62. SULFASALAZINE [Suspect]
     Active Substance: SULFASALAZINE
     Route: 048
  63. SULFASALAZINE [Suspect]
     Active Substance: SULFASALAZINE
     Route: 048
  64. SULFASALAZINE [Suspect]
     Active Substance: SULFASALAZINE
     Route: 048
  65. SULFASALAZINE [Suspect]
     Active Substance: SULFASALAZINE
     Route: 048
  66. SULFASALAZINE [Suspect]
     Active Substance: SULFASALAZINE
     Route: 048
  67. PREDNISONE [Suspect]
     Active Substance: PREDNISONE
     Indication: Rheumatoid arthritis
     Route: 048
  68. XELJANZ [Suspect]
     Active Substance: TOFACITINIB CITRATE
     Indication: Rheumatoid arthritis
  69. XELJANZ [Suspect]
     Active Substance: TOFACITINIB CITRATE
  70. XELJANZ [Suspect]
     Active Substance: TOFACITINIB CITRATE
     Route: 048
  71. XELJANZ [Suspect]
     Active Substance: TOFACITINIB CITRATE
  72. XELJANZ [Suspect]
     Active Substance: TOFACITINIB CITRATE
     Route: 048
  73. XELJANZ [Suspect]
     Active Substance: TOFACITINIB CITRATE
  74. XELJANZ [Suspect]
     Active Substance: TOFACITINIB CITRATE
  75. XELJANZ [Suspect]
     Active Substance: TOFACITINIB CITRATE
  76. METHOTREXATE [Suspect]
     Active Substance: METHOTREXATE
     Indication: Rheumatoid arthritis
  77. METHOTREXATE [Suspect]
     Active Substance: METHOTREXATE
     Route: 058
  78. METHOTREXATE [Suspect]
     Active Substance: METHOTREXATE
     Route: 058
  79. METHOTREXATE [Suspect]
     Active Substance: METHOTREXATE
     Route: 013
  80. METHOTREXATE [Suspect]
     Active Substance: METHOTREXATE
  81. METHOTREXATE [Suspect]
     Active Substance: METHOTREXATE
     Route: 042
  82. METHOTREXATE [Suspect]
     Active Substance: METHOTREXATE
  83. METHOTREXATE [Suspect]
     Active Substance: METHOTREXATE
  84. METHOTREXATE [Suspect]
     Active Substance: METHOTREXATE
     Route: 058
  85. METHOTREXATE [Suspect]
     Active Substance: METHOTREXATE
  86. METHOTREXATE [Suspect]
     Active Substance: METHOTREXATE
  87. METHOTREXATE [Suspect]
     Active Substance: METHOTREXATE
  88. METHOTREXATE [Suspect]
     Active Substance: METHOTREXATE
  89. METHOTREXATE [Suspect]
     Active Substance: METHOTREXATE
  90. METHOTREXATE [Suspect]
     Active Substance: METHOTREXATE
     Route: 058
  91. METHOTREXATE [Suspect]
     Active Substance: METHOTREXATE
     Route: 058
  92. METHOTREXATE [Suspect]
     Active Substance: METHOTREXATE
     Route: 058
  93. METHOTREXATE [Suspect]
     Active Substance: METHOTREXATE
  94. METHOTREXATE [Suspect]
     Active Substance: METHOTREXATE
  95. METHOTREXATE [Suspect]
     Active Substance: METHOTREXATE
  96. METHOTREXATE [Suspect]
     Active Substance: METHOTREXATE
     Route: 016
  97. METHOTREXATE [Suspect]
     Active Substance: METHOTREXATE
  98. METHOTREXATE [Suspect]
     Active Substance: METHOTREXATE
  99. ACETAMINOPHEN\OXYCODONE HYDROCHLORIDE [Suspect]
     Active Substance: ACETAMINOPHEN\OXYCODONE HYDROCHLORIDE
     Indication: Product used for unknown indication
  100. ACETAMINOPHEN\OXYCODONE HYDROCHLORIDE [Suspect]
     Active Substance: ACETAMINOPHEN\OXYCODONE HYDROCHLORIDE
  101. ACTEMRA [Suspect]
     Active Substance: TOCILIZUMAB
     Indication: Rheumatoid arthritis
     Route: 042
  102. ACTEMRA [Suspect]
     Active Substance: TOCILIZUMAB
     Route: 058
  103. ACTEMRA [Suspect]
     Active Substance: TOCILIZUMAB
     Route: 042
  104. ACTEMRA [Suspect]
     Active Substance: TOCILIZUMAB
     Route: 042
  105. ACTEMRA [Suspect]
     Active Substance: TOCILIZUMAB
     Route: 048
  106. ACTEMRA [Suspect]
     Active Substance: TOCILIZUMAB
  107. ACTEMRA [Suspect]
     Active Substance: TOCILIZUMAB
     Route: 042
  108. ACTEMRA [Suspect]
     Active Substance: TOCILIZUMAB
  109. ALENDRONATE SODIUM\CHOLECALCIFEROL [Suspect]
     Active Substance: ALENDRONATE SODIUM\CHOLECALCIFEROL
     Indication: Rheumatoid arthritis
     Route: 048
  110. ALENDRONIC ACID [Suspect]
     Active Substance: ALENDRONIC ACID
     Indication: Rheumatoid arthritis
  111. APREMILAST [Suspect]
     Active Substance: APREMILAST
     Indication: Product used for unknown indication
     Route: 048
  112. BORAGE OIL [Suspect]
     Active Substance: BORAGE OIL
     Indication: Product used for unknown indication
  113. CELEBREX [Suspect]
     Active Substance: CELECOXIB
     Indication: Arthritis
     Route: 058
  114. CETIRIZINE [Suspect]
     Active Substance: CETIRIZINE HYDROCHLORIDE
     Indication: Rheumatoid arthritis
  115. CETIRIZINE [Suspect]
     Active Substance: CETIRIZINE HYDROCHLORIDE
     Route: 048
  116. CETIRIZINE [Suspect]
     Active Substance: CETIRIZINE HYDROCHLORIDE
     Route: 016
  117. CETIRIZINE HYDROCHLORIDE [Suspect]
     Active Substance: CETIRIZINE HYDROCHLORIDE
     Indication: Rheumatoid arthritis
     Route: 048
  118. CETIRIZINE HYDROCHLORIDE [Suspect]
     Active Substance: CETIRIZINE HYDROCHLORIDE
     Route: 048
  119. CETIRIZINE HYDROCHLORIDE [Suspect]
     Active Substance: CETIRIZINE HYDROCHLORIDE
     Route: 048
  120. CETIRIZINE HYDROCHLORIDE [Suspect]
     Active Substance: CETIRIZINE HYDROCHLORIDE
     Route: 048
  121. CETIRIZINE HYDROCHLORIDE [Suspect]
     Active Substance: CETIRIZINE HYDROCHLORIDE
  122. CETIRIZINE HYDROCHLORIDE [Suspect]
     Active Substance: CETIRIZINE HYDROCHLORIDE
  123. CETIRIZINE HYDROCHLORIDE [Suspect]
     Active Substance: CETIRIZINE HYDROCHLORIDE
     Route: 048
  124. CETIRIZINE HYDROCHLORIDE [Suspect]
     Active Substance: CETIRIZINE HYDROCHLORIDE
     Route: 048
  125. CETIRIZINE HYDROCHLORIDE [Suspect]
     Active Substance: CETIRIZINE HYDROCHLORIDE
  126. CETIRIZINE HYDROCHLORIDE [Suspect]
     Active Substance: CETIRIZINE HYDROCHLORIDE
  127. CETIRIZINE HYDROCHLORIDE [Suspect]
     Active Substance: CETIRIZINE HYDROCHLORIDE
     Route: 048
  128. CETIRIZINE HYDROCHLORIDE [Suspect]
     Active Substance: CETIRIZINE HYDROCHLORIDE
     Route: 048
  129. CETIRIZINE HYDROCHLORIDE [Suspect]
     Active Substance: CETIRIZINE HYDROCHLORIDE
  130. CETIRIZINE HYDROCHLORIDE [Suspect]
     Active Substance: CETIRIZINE HYDROCHLORIDE
  131. CETIRIZINE HYDROCHLORIDE [Suspect]
     Active Substance: CETIRIZINE HYDROCHLORIDE
  132. CETIRIZINE HYDROCHLORIDE [Suspect]
     Active Substance: CETIRIZINE HYDROCHLORIDE
  133. CETIRIZINE HYDROCHLORIDE [Suspect]
     Active Substance: CETIRIZINE HYDROCHLORIDE
     Route: 048
  134. CETIRIZINE HYDROCHLORIDE [Suspect]
     Active Substance: CETIRIZINE HYDROCHLORIDE
     Route: 048
  135. CETIRIZINE HYDROCHLORIDE [Suspect]
     Active Substance: CETIRIZINE HYDROCHLORIDE
     Route: 048
  136. CETIRIZINE HYDROCHLORIDE [Suspect]
     Active Substance: CETIRIZINE HYDROCHLORIDE
  137. CETIRIZINE HYDROCHLORIDE [Suspect]
     Active Substance: CETIRIZINE HYDROCHLORIDE
  138. CETIRIZINE HYDROCHLORIDE [Suspect]
     Active Substance: CETIRIZINE HYDROCHLORIDE
     Route: 048
  139. DESOXIMETASONE [Suspect]
     Active Substance: DESOXIMETASONE
     Indication: Rheumatoid arthritis
  140. DESOXIMETASONE [Suspect]
     Active Substance: DESOXIMETASONE
  141. DESOXIMETASONE [Suspect]
     Active Substance: DESOXIMETASONE
  142. DESOXIMETASONE [Suspect]
     Active Substance: DESOXIMETASONE
     Route: 058
  143. DESOXIMETASONE [Suspect]
     Active Substance: DESOXIMETASONE
  144. DESOXIMETASONE [Suspect]
     Active Substance: DESOXIMETASONE
     Route: 058
  145. DESOXIMETASONE [Suspect]
     Active Substance: DESOXIMETASONE
  146. DESOXIMETASONE [Suspect]
     Active Substance: DESOXIMETASONE
     Route: 058
  147. ISOPROPYL ALCOHOL [Suspect]
     Active Substance: ISOPROPYL ALCOHOL
     Indication: Product used for unknown indication
  148. MESALAMINE [Suspect]
     Active Substance: MESALAMINE
     Indication: Product used for unknown indication
  149. NAPROXEN [Suspect]
     Active Substance: NAPROXEN
     Indication: Product used for unknown indication
  150. OTEZLA [Suspect]
     Active Substance: APREMILAST
     Indication: Product used for unknown indication
     Route: 048
  151. PLAQUENIL [Suspect]
     Active Substance: HYDROXYCHLOROQUINE SULFATE
     Indication: Rheumatoid arthritis
     Route: 048
  152. PLAQUENIL [Suspect]
     Active Substance: HYDROXYCHLOROQUINE SULFATE
     Route: 048
  153. PLAQUENIL [Suspect]
     Active Substance: HYDROXYCHLOROQUINE SULFATE
     Route: 048
  154. PSEUDOEPHEDRINE [Suspect]
     Active Substance: PSEUDOEPHEDRINE
     Indication: Product used for unknown indication
  155. CETIRIZINE HYDROCHLORIDE\PSEUDOEPHEDRINE HYDROCHLORIDE [Suspect]
     Active Substance: CETIRIZINE HYDROCHLORIDE\PSEUDOEPHEDRINE HYDROCHLORIDE
     Indication: Rheumatoid arthritis
     Route: 048
  156. CETIRIZINE HYDROCHLORIDE\PSEUDOEPHEDRINE HYDROCHLORIDE [Suspect]
     Active Substance: CETIRIZINE HYDROCHLORIDE\PSEUDOEPHEDRINE HYDROCHLORIDE
  157. CETIRIZINE HYDROCHLORIDE\PSEUDOEPHEDRINE HYDROCHLORIDE [Suspect]
     Active Substance: CETIRIZINE HYDROCHLORIDE\PSEUDOEPHEDRINE HYDROCHLORIDE
  158. DIETARY SUPPLEMENT\HERBALS [Suspect]
     Active Substance: DIETARY SUPPLEMENT\HERBALS
     Indication: Product used for unknown indication
  159. SOLU-MEDROL [Suspect]
     Active Substance: METHYLPREDNISOLONE SODIUM SUCCINATE
     Indication: Product used for unknown indication
  160. STELARA [Suspect]
     Active Substance: USTEKINUMAB
     Indication: Rheumatoid arthritis
     Route: 058
  161. TOPICORT [Suspect]
     Active Substance: DESOXIMETASONE
     Indication: Rheumatoid arthritis
     Route: 058
  162. TOPICORT [Suspect]
     Active Substance: DESOXIMETASONE
     Route: 003
  163. TOPICORT [Suspect]
     Active Substance: DESOXIMETASONE
     Route: 048
  164. TOPICORT [Suspect]
     Active Substance: DESOXIMETASONE

REACTIONS (53)
  - Joint dislocation [Fatal]
  - Liver disorder [Fatal]
  - Malaise [Fatal]
  - Knee arthroplasty [Fatal]
  - Joint swelling [Fatal]
  - Lupus-like syndrome [Fatal]
  - Lower respiratory tract infection [Fatal]
  - Lung disorder [Fatal]
  - Laryngitis [Fatal]
  - Liver injury [Fatal]
  - Migraine [Fatal]
  - Muscle injury [Fatal]
  - Muscle spasms [Fatal]
  - Musculoskeletal pain [Fatal]
  - Musculoskeletal stiffness [Fatal]
  - Myositis [Fatal]
  - Nasopharyngitis [Fatal]
  - Night sweats [Fatal]
  - Obesity [Fatal]
  - Off label use [Fatal]
  - Osteoarthritis [Fatal]
  - Osteoporosis [Fatal]
  - Pain [Fatal]
  - Paraesthesia [Fatal]
  - Pemphigus [Fatal]
  - Pericarditis [Fatal]
  - Peripheral venous disease [Fatal]
  - Porphyria acute [Fatal]
  - Prescribed overdose [Fatal]
  - Pruritus [Fatal]
  - Psoriasis [Fatal]
  - Pustular psoriasis [Fatal]
  - Pyrexia [Fatal]
  - Rash [Fatal]
  - Rash vesicular [Fatal]
  - Red blood cell sedimentation rate increased [Fatal]
  - Retinitis [Fatal]
  - Rheumatic fever [Fatal]
  - Sinusitis [Fatal]
  - Sleep disorder due to general medical condition, insomnia type [Fatal]
  - Stomatitis [Fatal]
  - Subcutaneous drug absorption impaired [Fatal]
  - Swelling [Fatal]
  - Synovitis [Fatal]
  - Systemic lupus erythematosus [Fatal]
  - Tachycardia [Fatal]
  - Visual impairment [Fatal]
  - Walking aid user [Fatal]
  - Weight decreased [Fatal]
  - Weight increased [Fatal]
  - Wound [Fatal]
  - Wound infection [Fatal]
  - X-ray abnormal [Fatal]
